FAERS Safety Report 7337949-6 (Version None)
Quarter: 2011Q1

REPORT INFORMATION
  Report Type: 
  Country: None (occurrence: None)
  Receive Date: 20110308
  Receipt Date: 20110302
  Transmission Date: 20110831
  Serious: Yes (Other)
  Sender: FDA-Public Use
  Company Number: IT-ROCHE-763425

PATIENT
  Sex: Female
  Weight: 63 kg

DRUGS (3)
  1. TRASTUZUMAB [Suspect]
     Route: 065
     Dates: start: 20090618, end: 20100401
  2. VINORELBINA [Suspect]
     Route: 065
     Dates: end: 20091112
  3. CAPECITABINE [Suspect]
     Route: 065
     Dates: end: 20091112

REACTIONS (2)
  - CHOLESTASIS [None]
  - DISEASE PROGRESSION [None]
